FAERS Safety Report 15967705 (Version 1)
Quarter: 2019Q1

REPORT INFORMATION
  Report Type: Spontaneous
  Country: US (occurrence: US)
  Receive Date: 20190215
  Receipt Date: 20190215
  Transmission Date: 20190418
  Serious: Yes (Life-Threatening, Hospitalization, Disabling, Other)
  Sender: FDA-Public Use
  Company Number: None

PATIENT
  Age: 41 Year
  Sex: Male
  Weight: 77.11 kg

DRUGS (1)
  1. GADOLINIUM DYE INJECTION [Suspect]
     Active Substance: GADOLINIUM

REACTIONS (6)
  - Feeling abnormal [None]
  - Vision blurred [None]
  - Pain in extremity [None]
  - Fatigue [None]
  - Hypoaesthesia [None]
  - Suicidal ideation [None]

NARRATIVE: CASE EVENT DATE: 20170824
